FAERS Safety Report 14303228 (Version 2)
Quarter: 2017Q4

REPORT INFORMATION
  Report Type: Report from Study
  Country: US (occurrence: US)
  Receive Date: 20171219
  Receipt Date: 20171228
  Transmission Date: 20180321
  Serious: Yes (Hospitalization)
  Sender: FDA-Public Use
  Company Number: US-SAOL THERAPEUTICS-2017SAO01714

PATIENT
  Age: 55 Year
  Weight: 68.93 kg

DRUGS (1)
  1. LIORESAL [Suspect]
     Active Substance: BACLOFEN
     Route: 037

REACTIONS (4)
  - Nausea [Unknown]
  - Urinary tract infection [Recovered/Resolved]
  - Urinary incontinence [Unknown]
  - Headache [Unknown]

NARRATIVE: CASE EVENT DATE: 20160314
